FAERS Safety Report 15995212 (Version 2)
Quarter: 2019Q1

REPORT INFORMATION
  Report Type: Spontaneous
  Country: US (occurrence: US)
  Receive Date: 20190222
  Receipt Date: 20190315
  Transmission Date: 20190418
  Serious: Yes (Hospitalization)
  Sender: FDA-Public Use
  Company Number: US-HORIZON-ACT-0036-2019

PATIENT
  Age: 31 Year
  Sex: Female

DRUGS (5)
  1. CORTON [Concomitant]
  2. VORICONAZOLE. [Concomitant]
     Active Substance: VORICONAZOLE
     Dosage: 50 MG IN THE MORNING AND 50 MG AT NIGHT
  3. COTRIMOXAZOLE [Concomitant]
     Active Substance: SULFAMETHOXAZOLE\TRIMETHOPRIM
     Indication: CHRONIC GRANULOMATOUS DISEASE
  4. MEROPENEM. [Concomitant]
     Active Substance: MEROPENEM
  5. ACTIMMUNE [Suspect]
     Active Substance: INTERFERON GAMMA-1B
     Indication: CHRONIC GRANULOMATOUS DISEASE
     Dosage: THREE TIMES A WEEK

REACTIONS (3)
  - Pneumonia [Unknown]
  - Dyspnoea [Recovered/Resolved]
  - Malaise [Unknown]
